FAERS Safety Report 5028180-8 (Version None)
Quarter: 2006Q2

REPORT INFORMATION
  Report Type: 
  Country: None (occurrence: None)
  Receive Date: 20060613
  Receipt Date: 20060529
  Transmission Date: 20061013
  Serious: Yes (Other)
  Sender: FDA-Public Use
  Company Number: GXKR2006ES03008

PATIENT
  Age: 33 Year
  Sex: Female

DRUGS (4)
  1. TRAMADOL HCL [Suspect]
     Indication: PAIN
     Dosage: 50 MG, TID
  2. PAROXETINE [Concomitant]
  3. IMIPRAMINE [Concomitant]
  4. ACETAMINOPHEN [Concomitant]

REACTIONS (5)
  - ALVEOLITIS ALLERGIC [None]
  - COUGH [None]
  - LUNG INFILTRATION [None]
  - RALES [None]
  - RED BLOOD CELL SEDIMENTATION RATE INCREASED [None]
